FAERS Safety Report 5299398-4 (Version None)
Quarter: 2007Q2

REPORT INFORMATION
  Report Type: 
  Country: None (occurrence: None)
  Receive Date: 20070417
  Receipt Date: 20070404
  Transmission Date: 20071010
  Serious: Yes (Other)
  Sender: FDA-Public Use
  Company Number: PHNU2007DE01444

PATIENT
  Sex: Female

DRUGS (17)
  1. FEMARA [Suspect]
     Dosage: 2.5MG
     Route: 048
  2. FUROSEMIDE [Suspect]
     Dosage: 1 DF, QD
     Route: 048
  3. PREDNISONE TAB [Suspect]
     Dosage: 1 DF, QD
     Route: 048
  4. DOXEPIN HCL [Suspect]
     Dosage: 1 DF, QD
     Route: 048
  5. ACETYLSALICYLIC ACID SRT [Suspect]
     Dosage: 1 DF, QD
     Route: 048
  6. THEOPHYLLINE [Suspect]
     Dosage: 1 DF, QD
     Route: 048
  7. LEVOTHYROXINE SODIUM [Suspect]
     Dosage: 1 DF, QD
     Route: 048
  8. MORPHINE [Suspect]
     Dosage: 10 MG, QD
     Route: 048
  9. FLUPIRTINE MALEATE [Suspect]
     Dosage: 1 DF, QD
     Route: 048
  10. FENTANYL [Suspect]
     Dosage: 1 DF, QD
     Route: 062
  11. BUDESONIDE W/FORMOTEROL FUMARATE [Suspect]
     Route: 065
  12. METOCLOPRAMIDE [Suspect]
     Route: 048
  13. LACTULOSE [Suspect]
     Route: 048
  14. URSODIOL [Suspect]
     Route: 048
  15. CLARITHROMYCIN [Suspect]
     Route: 048
  16. METRONIDAZOLE [Suspect]
     Route: 048
  17. PANTOPRAZOLE [Suspect]
     Route: 048

REACTIONS (1)
  - HEPATITIS [None]
